FAERS Safety Report 8157332-3 (Version None)
Quarter: 2012Q1

REPORT INFORMATION
  Report Type: 
  Country: None (occurrence: None)
  Receive Date: 20120222
  Receipt Date: 20120217
  Transmission Date: 20120608
  Serious: Yes (Hospitalization, Disabling, Other)
  Sender: FDA-Public Use
  Company Number: US-ROCHE-349554

PATIENT
  Sex: Female
  Weight: 63.5 kg

DRUGS (6)
  1. ACCUTANE [Suspect]
     Route: 048
     Dates: start: 19980617, end: 19990501
  2. NAPROXEN (ALEVE) [Concomitant]
  3. ACCUTANE [Suspect]
     Route: 048
     Dates: start: 19921201, end: 19930519
  4. DESOGEN [Concomitant]
     Indication: CONTRACEPTION
  5. ACCUTANE [Suspect]
     Indication: ACNE
     Route: 048
     Dates: start: 19921118, end: 19921201
  6. IBUPROFEN (ADVIL) [Concomitant]
     Indication: DYSMENORRHOEA
     Route: 048

REACTIONS (29)
  - FLATULENCE [None]
  - MUSCULOSKELETAL DISCOMFORT [None]
  - BACK PAIN [None]
  - LIPOMA [None]
  - BLOOD CHOLESTEROL INCREASED [None]
  - COLITIS ULCERATIVE [None]
  - ABDOMINAL PAIN [None]
  - DRY SKIN [None]
  - DERMATITIS [None]
  - CROHN'S DISEASE [None]
  - ABDOMINAL DISCOMFORT [None]
  - DIARRHOEA [None]
  - ABDOMINAL DISTENSION [None]
  - IRRITABLE BOWEL SYNDROME [None]
  - MENSTRUATION IRREGULAR [None]
  - ABSCESS [None]
  - BLOOD TRIGLYCERIDES INCREASED [None]
  - INGUINAL HERNIA [None]
  - INFLAMMATORY BOWEL DISEASE [None]
  - FATIGUE [None]
  - WEIGHT DECREASED [None]
  - DEPRESSION [None]
  - OTITIS EXTERNA [None]
  - PROCTITIS [None]
  - ALANINE AMINOTRANSFERASE INCREASED [None]
  - INFLAMMATION [None]
  - RECTAL HAEMORRHAGE [None]
  - ARTHRALGIA [None]
  - DISTURBANCE IN ATTENTION [None]
